FAERS Safety Report 4891052-3 (Version None)
Quarter: 2006Q1

REPORT INFORMATION
  Report Type: 
  Country: None (occurrence: None)
  Receive Date: 20060123
  Receipt Date: 20060109
  Transmission Date: 20060701
  Serious: Yes (Hospitalization)
  Sender: FDA-Public Use
  Company Number: 2006006168

PATIENT
  Age: 78 Year
  Sex: Male

DRUGS (1)
  1. EMCYT [Suspect]
     Indication: PROSTATE CANCER
     Dosage: 11760 MG

REACTIONS (4)
  - COUGH [None]
  - DIZZINESS [None]
  - DYSPNOEA EXACERBATED [None]
  - OEDEMA PERIPHERAL [None]
